FAERS Safety Report 6183462-1 (Version None)
Quarter: 2009Q2

REPORT INFORMATION
  Report Type: 
  Country: None (occurrence: None)
  Receive Date: 20090506
  Receipt Date: 20090429
  Transmission Date: 20091009
  Serious: Yes (Hospitalization, Other)
  Sender: FDA-Public Use
  Company Number: KV200900453

PATIENT
  Age: 66 Year
  Sex: Female

DRUGS (4)
  1. MORPHINE SULFATE [Suspect]
     Indication: CANCER PAIN
     Dosage: 30 MG, TWO TABLETS TID, ORAL
     Route: 048
     Dates: start: 20081103, end: 20081110
  2. ALBUTEROL /00139501/ (SALBUTAMOL) [Concomitant]
  3. SENOKOT /00142201/ (SENNA ALEXANDRINA) [Concomitant]
  4. UNSPECIFIED ACID REFLUX MEDICATION [Concomitant]

REACTIONS (17)
  - ACUTE MYOCARDIAL INFARCTION [None]
  - ACUTE RESPIRATORY FAILURE [None]
  - ASTHENIA [None]
  - ATRIAL FLUTTER [None]
  - BUNDLE BRANCH BLOCK LEFT [None]
  - BUNDLE BRANCH BLOCK RIGHT [None]
  - CARDIOMYOPATHY [None]
  - CHEST PAIN [None]
  - DIARRHOEA [None]
  - DRUG ABUSER [None]
  - HYPOTENSION [None]
  - PANCYTOPENIA [None]
  - POST PROCEDURAL HAEMORRHAGE [None]
  - PRODUCT QUALITY ISSUE [None]
  - PYREXIA [None]
  - SINUS TACHYCARDIA [None]
  - VOMITING [None]
